FAERS Safety Report 23474520 (Version 1)
Quarter: 2024Q1

REPORT INFORMATION
  Report Type: Report from Study
  Country: US (occurrence: US)
  Receive Date: 20240204
  Receipt Date: 20240204
  Transmission Date: 20240410
  Serious: Yes (Other)
  Sender: FDA-Public Use
  Company Number: US-EXELIXIS-CABO-23062374

PATIENT
  Age: 27 Year
  Sex: Male

DRUGS (13)
  1. CABOMETYX [Suspect]
     Active Substance: CABOZANTINIB S-MALATE
     Indication: Malignant connective tissue neoplasm
     Dosage: 60 MG, QD
     Dates: start: 20230309
  2. CABOMETYX [Suspect]
     Active Substance: CABOZANTINIB S-MALATE
     Indication: Soft tissue sarcoma
     Dosage: 60 MG, QOD
     Dates: start: 20230516
  3. CABOMETYX [Suspect]
     Active Substance: CABOZANTINIB S-MALATE
     Indication: Metastases to lung
  4. OPDIVO [Concomitant]
     Active Substance: NIVOLUMAB
  5. YERVOY [Concomitant]
     Active Substance: IPILIMUMAB
  6. KEYTRUDA [Concomitant]
     Active Substance: PEMBROLIZUMAB
  7. ZOFRAN [Concomitant]
     Active Substance: ONDANSETRON HYDROCHLORIDE
  8. COMPAZINE [Concomitant]
     Active Substance: PROCHLORPERAZINE MALEATE
  9. CEPHALEXIN [Concomitant]
     Active Substance: CEPHALEXIN
  10. CLOBETASOL [Concomitant]
     Active Substance: CLOBETASOL
  11. ZYRTEC [Concomitant]
     Active Substance: CETIRIZINE HYDROCHLORIDE
  12. ZOLOFT [Concomitant]
     Active Substance: SERTRALINE HYDROCHLORIDE
  13. GABAPENTIN [Concomitant]
     Active Substance: GABAPENTIN
     Dosage: UNK

REACTIONS (17)
  - Malignant neoplasm progression [Unknown]
  - Appetite disorder [Recovering/Resolving]
  - Pain in jaw [Recovered/Resolved]
  - Respiration abnormal [Recovering/Resolving]
  - Blood iron decreased [Not Recovered/Not Resolved]
  - Fatigue [Not Recovered/Not Resolved]
  - Asthenia [Not Recovered/Not Resolved]
  - Diarrhoea [Recovering/Resolving]
  - Nausea [Not Recovered/Not Resolved]
  - Vomiting [Not Recovered/Not Resolved]
  - Blood pressure increased [Recovering/Resolving]
  - Fungal balanitis [Recovered/Resolved]
  - Nasal pruritus [Unknown]
  - Palmar-plantar erythrodysaesthesia syndrome [Recovering/Resolving]
  - Ageusia [Unknown]
  - Inappropriate schedule of product administration [Unknown]
  - Off label use [Unknown]

NARRATIVE: CASE EVENT DATE: 20230406
